FAERS Safety Report 7548584-9 (Version None)
Quarter: 2011Q2

REPORT INFORMATION
  Report Type: 
  Country: None (occurrence: None)
  Receive Date: 20110524
  Receipt Date: 20110124
  Transmission Date: 20111010
  Serious: No
  Sender: FDA-Public Use
  Company Number: 026051

PATIENT
  Sex: Female
  Weight: 127 kg

DRUGS (4)
  1. CIMZIA [Suspect]
     Indication: CROHN'S DISEASE
     Dosage: (2 SHOTS SUBCUTANEOUS)
     Route: 058
     Dates: start: 20101110
  2. MESALAMINE [Concomitant]
  3. M.V.I. [Concomitant]
  4. PROTONIX [Concomitant]

REACTIONS (1)
  - ALOPECIA [None]
